FAERS Safety Report 7712215-5 (Version None)
Quarter: 2011Q3

REPORT INFORMATION
  Report Type: 
  Country: None (occurrence: None)
  Receive Date: 20110826
  Receipt Date: 20110822
  Transmission Date: 20111222
  Serious: Yes (Death, Hospitalization, Other)
  Sender: FDA-Public Use
  Company Number: JP-ACTELION-A-CH2011-47950

PATIENT
  Age: 83 Year
  Sex: Female
  Weight: 45 kg

DRUGS (14)
  1. ASPIRIN [Concomitant]
  2. ALENDRONATE SODIUM [Concomitant]
  3. OXYGEN [Concomitant]
  4. CARBOCISTEINE [Concomitant]
  5. AMBROXOL HYDROCHLORIDE [Concomitant]
  6. ALFACALCIDOL [Concomitant]
  7. FAMOTIDINE [Concomitant]
  8. PREDNISOLONE [Concomitant]
  9. GLIMEPIRIDE [Concomitant]
  10. TRACLEER [Suspect]
     Indication: PULMONARY ARTERIAL HYPERTENSION
     Dosage: 62.5 MG, BID
     Route: 048
     Dates: start: 20101216, end: 20110106
  11. BROTIZOLAM [Concomitant]
  12. SULFAMETHOXAZOLE AND TRIMETHOPRIM [Concomitant]
  13. AMLODIPINE BESYLATE [Concomitant]
  14. SPIRONOLACTONE [Concomitant]

REACTIONS (4)
  - INTERSTITIAL LUNG DISEASE [None]
  - OEDEMA PERIPHERAL [None]
  - PNEUMONIA BACTERIAL [None]
  - ALANINE AMINOTRANSFERASE INCREASED [None]
